FAERS Safety Report 18261935 (Version 1)
Quarter: 2020Q3

REPORT INFORMATION
  Report Type: Spontaneous
  Country: FR (occurrence: FR)
  Receive Date: 20200914
  Receipt Date: 20200914
  Transmission Date: 20201103
  Serious: Yes (Hospitalization)
  Sender: FDA-Public Use
  Company Number: FR-TEVA-2020-FR-1826179

PATIENT
  Age: 84 Year
  Sex: Male
  Weight: 82 kg

DRUGS (10)
  1. CORDARONE [Suspect]
     Active Substance: AMIODARONE HYDROCHLORIDE
     Indication: ARRHYTHMIA
     Dosage: 1 DOSAGE FORMS DAILY;   5 DAYS A WEEK
     Route: 048
     Dates: end: 20170608
  2. CALCIDOSE VITAMINE D, POUDRE ORALE EN SACHET?DOSE [Concomitant]
     Active Substance: CALCIUM\CHOLECALCIFEROL
     Dosage: 2 DOSAGE FORMS
     Route: 048
  3. POLARAMINE [Concomitant]
     Active Substance: DEXCHLORPHENIRAMINE MALEATE
     Indication: PREMEDICATION
     Dosage: 5 MG
     Dates: start: 20200608, end: 20200608
  4. SINTROM [Concomitant]
     Active Substance: ACENOCOUMAROL
     Dosage: 0.5 CP 2 D / 3 AND 0.25 CP 1 D / 3
     Route: 048
  5. LASILIX SPECIAL 500 MG, COMPRIME SECABLE [Concomitant]
     Active Substance: FUROSEMIDE
     Dosage: 0.25  DOSAGE FORMS
     Route: 048
  6. PREDNISONE. [Concomitant]
     Active Substance: PREDNISONE
     Indication: PREMEDICATION
     Dosage: 120 MG
     Dates: start: 20200608, end: 20200608
  7. FUROSEMIDE. [Concomitant]
     Active Substance: FUROSEMIDE
     Dosage: 80 MG
     Route: 048
  8. PACLITAXEL. [Suspect]
     Active Substance: PACLITAXEL
     Indication: KAPOSI^S SARCOMA CLASSICAL TYPE
     Route: 041
     Dates: start: 20170608, end: 20170608
  9. LANTUS [Concomitant]
     Active Substance: INSULIN GLARGINE
     Dosage: 18 IU
     Route: 058
  10. NEBIVOLOL. [Suspect]
     Active Substance: NEBIVOLOL
     Indication: ARRHYTHMIA
     Dosage: 5 MG
     Route: 048
     Dates: end: 20170608

REACTIONS (3)
  - Atrial tachycardia [Recovered/Resolved]
  - Atrioventricular block [Recovered/Resolved]
  - Bundle branch block [Recovered/Resolved]

NARRATIVE: CASE EVENT DATE: 201707
